FAERS Safety Report 15852193 (Version 1)
Quarter: 2019Q1

REPORT INFORMATION
  Report Type: Spontaneous
  Country: GB (occurrence: GB)
  Receive Date: 20190122
  Receipt Date: 20190122
  Transmission Date: 20190417
  Serious: Yes (Other)
  Sender: FDA-Public Use
  Company Number: GB-ACCORD-102623

PATIENT
  Age: 71 Year
  Sex: Female
  Weight: 81 kg

DRUGS (12)
  1. EUMOVATE [Concomitant]
     Active Substance: CLOBETASONE BUTYRATE
     Dosage: APPLY 1-2 TIMES/DAY
     Dates: start: 20180223, end: 20180323
  2. INDAPAMIDE. [Concomitant]
     Active Substance: INDAPAMIDE
     Dosage: EACH MORNING
     Dates: start: 20170727
  3. PERINDOPRIL/PERINDOPRIL ERBUMINE [Concomitant]
     Dosage: IN THE MORNING
     Dates: start: 20170727
  4. DONEPEZIL/DONEPEZIL HYDROCHLORIDE [Suspect]
     Active Substance: DONEPEZIL HYDROCHLORIDE
     Indication: DEMENTIA
  5. CLARITHROMYCIN. [Concomitant]
     Active Substance: CLARITHROMYCIN
     Dates: start: 20180209, end: 20180216
  6. MOMETASONE [Concomitant]
     Active Substance: MOMETASONE
     Dosage: APPLY SPARINGLY TO FACE, AVOID EYES
     Dates: start: 20180207, end: 20180307
  7. ROSUVASTATIN/ROSUVASTATIN CALCIUM [Concomitant]
     Dosage: AT NIGHT
     Dates: start: 20170727
  8. BETNOVATE [Concomitant]
     Active Substance: BETAMETHASONE
     Dosage: APPLY TO THE AFFECTED AREA ONCE OR TWICE DAILY ...
     Dates: start: 20180207, end: 20180307
  9. FENBID [Concomitant]
     Active Substance: IBUPROFEN
     Indication: ANALGESIC THERAPY
     Dosage: APPLY 3 TIMES/DAY TO HELP WITH PAIN.
     Dates: start: 20180207, end: 20180307
  10. DOXAZOSIN [Concomitant]
     Active Substance: DOXAZOSIN\DOXAZOSIN MESYLATE
     Dosage: IN THE MORNING
     Dates: start: 20170727
  11. FUSIDIC ACID [Concomitant]
     Active Substance: FUSIDIC ACID
     Dosage: APPLY TO THE AFFECTED AREA THREE TO FOUR TIMES ...
     Dates: start: 20180209, end: 20180216
  12. FEXOFENADINE/FEXOFENADINE HYDROCHLORIDE [Concomitant]
     Indication: URTICARIA
     Dates: start: 20180205, end: 20180307

REACTIONS (5)
  - Skin exfoliation [Unknown]
  - Dermatitis allergic [Recovered/Resolved]
  - Secretion discharge [Unknown]
  - Erythema [Unknown]
  - Scab [Unknown]

NARRATIVE: CASE EVENT DATE: 20180209
